FAERS Safety Report 6932454-0 (Version None)
Quarter: 2010Q3

REPORT INFORMATION
  Report Type: 
  Country: None (occurrence: None)
  Receive Date: 20100819
  Receipt Date: 20100708
  Transmission Date: 20110219
  Serious: Yes (Death, Other)
  Sender: FDA-Public Use
  Company Number: US-BAXTER-2010BH003676

PATIENT
  Age: 68 Year
  Sex: Female

DRUGS (1)
  1. HEPARIN SODIUM INJECTION [Suspect]
     Indication: CARDIAC PACEMAKER REVISION
     Route: 042
     Dates: start: 20080101, end: 20080201

REACTIONS (5)
  - CARDIAC FAILURE CONGESTIVE [None]
  - HYPERTENSIVE CARDIOMYOPATHY [None]
  - PRURITUS [None]
  - RESPIRATORY FAILURE [None]
  - VOMITING [None]
